FAERS Safety Report 10935377 (Version 1)
Quarter: 2015Q1

REPORT INFORMATION
  Report Type: Spontaneous
  Country: GB (occurrence: GB)
  Receive Date: 20150320
  Receipt Date: 20150320
  Transmission Date: 20150721
  Serious: Yes (Other)
  Sender: FDA-Public Use
  Company Number: GB-WATSON-2015-05482

PATIENT
  Age: 51 Year
  Sex: Female
  Weight: 63.5 kg

DRUGS (2)
  1. METFORMINE [Concomitant]
     Active Substance: METFORMIN HYDROCHLORIDE
     Indication: PRODUCT USED FOR UNKNOWN INDICATION
     Dosage: UNK
     Route: 065
  2. FOLIC ACID (UNKNOWN) [Suspect]
     Active Substance: FOLIC ACID
     Indication: VITAMIN B12 DEFICIENCY
     Dosage: 5 MG, DAILY
     Route: 048
     Dates: start: 20150209, end: 20150212

REACTIONS (5)
  - Pruritus [Recovered/Resolved with Sequelae]
  - Blister [Recovered/Resolved with Sequelae]
  - Lip swelling [Recovered/Resolved with Sequelae]
  - Erythema [Recovered/Resolved with Sequelae]
  - Eye swelling [Recovered/Resolved with Sequelae]
